FAERS Safety Report 4301255-4 (Version None)
Quarter: 2004Q1

REPORT INFORMATION
  Report Type: 
  Country: None (occurrence: None)
  Receive Date: 20040220
  Receipt Date: 20040220
  Transmission Date: 20041129
  Serious: Yes (Hospitalization)
  Sender: FDA-Public Use
  Company Number: None

PATIENT
  Age: 70 Year
  Sex: Female
  Weight: 53.1 kg

DRUGS (4)
  1. GEMZAR [Suspect]
     Indication: BREAST CANCER
     Dosage: 1000 MG/M2 =1570 MG IV
     Route: 042
     Dates: start: 20040205
  2. GEMZAR [Suspect]
     Indication: BREAST CANCER
     Dosage: 1000 MG/M2 =1570 MG IV
     Route: 042
     Dates: start: 20040212
  3. NAVELBINE [Suspect]
     Indication: BREAST CANCER
     Dosage: 25 MG /M2 =39 MG IV
     Route: 042
     Dates: start: 20040205
  4. NAVELBINE [Suspect]
     Indication: BREAST CANCER
     Dosage: 25 MG /M2 =39 MG IV
     Route: 042
     Dates: start: 20040212

REACTIONS (3)
  - INJECTION SITE PHLEBITIS [None]
  - MALIGNANT PLEURAL EFFUSION [None]
  - PYREXIA [None]
